FAERS Safety Report 7682804-5 (Version None)
Quarter: 2011Q3

REPORT INFORMATION
  Report Type: 
  Country: None (occurrence: None)
  Receive Date: 20110815
  Receipt Date: 20110803
  Transmission Date: 20111222
  Serious: Yes (Hospitalization)
  Sender: FDA-Public Use
  Company Number: JP-ROCHE-757481

PATIENT
  Sex: Female
  Weight: 53 kg

DRUGS (14)
  1. LOXONIN [Concomitant]
     Route: 048
     Dates: start: 20060926, end: 20100228
  2. ALENDRONATE SODIUM [Concomitant]
     Route: 048
     Dates: start: 20060926
  3. RABEPRAZOLE SODIUM [Concomitant]
     Route: 048
     Dates: start: 20060111
  4. ACTEMRA [Suspect]
     Indication: RHEUMATOID ARTHRITIS
     Route: 041
     Dates: start: 20100105, end: 20100202
  5. ENBREL [Suspect]
     Indication: RHEUMATOID ARTHRITIS
     Route: 048
  6. DEPAS [Concomitant]
     Route: 048
     Dates: start: 20061106
  7. OLMESARTAN MEDOXOMIL [Concomitant]
     Route: 048
     Dates: start: 20070220
  8. PREDNISOLONE [Concomitant]
     Dosage: FORM: PERORAL AGENT
     Route: 048
     Dates: start: 20070717, end: 20100301
  9. ENBREL [Suspect]
     Route: 048
     Dates: start: 20070213, end: 20100104
  10. SODIUM AUROTHIOMALATE [Concomitant]
     Route: 030
     Dates: end: 20100202
  11. ALFAROL [Concomitant]
     Route: 048
     Dates: start: 20060111
  12. ADALAT [Concomitant]
     Route: 048
     Dates: start: 20070220
  13. VOLTAREN [Concomitant]
     Route: 054
     Dates: start: 20100105, end: 20100202
  14. SELBEX [Concomitant]
     Route: 048
     Dates: start: 20060926, end: 20100228

REACTIONS (1)
  - ORGANISING PNEUMONIA [None]
